FAERS Safety Report 7400088-X (Version None)
Quarter: 2011Q2

REPORT INFORMATION
  Report Type: 
  Country: None (occurrence: None)
  Receive Date: 20110407
  Receipt Date: 20100411
  Transmission Date: 20111010
  Serious: Yes (Other)
  Sender: FDA-Public Use
  Company Number: PHHY2010DE90906

PATIENT
  Sex: Female

DRUGS (1)
  1. EXTAVIA [Suspect]
     Route: 058
     Dates: start: 20100310

REACTIONS (4)
  - PHOBIA [None]
  - INJECTION SITE PAIN [None]
  - OPTIC NEURITIS [None]
  - FORMICATION [None]
